FAERS Safety Report 7824932-7 (Version None)
Quarter: 2011Q4

REPORT INFORMATION
  Report Type: 
  Country: None (occurrence: None)
  Receive Date: 20111019
  Receipt Date: 20110919
  Transmission Date: 20120403
  Serious: No
  Sender: FDA-Public Use
  Company Number: US-BRISTOL-MYERS SQUIBB COMPANY-15578818

PATIENT
  Sex: Female

DRUGS (5)
  1. JANUVIA [Concomitant]
  2. SYNTHROID [Concomitant]
  3. AVALIDE [Suspect]
  4. LIPITOR [Concomitant]
  5. METFORMIN HCL [Concomitant]

REACTIONS (5)
  - HYPERTENSION [None]
  - CHEST DISCOMFORT [None]
  - NAUSEA [None]
  - PAIN IN EXTREMITY [None]
  - HEADACHE [None]
